FAERS Safety Report 6311737-1 (Version None)
Quarter: 2009Q3

REPORT INFORMATION
  Report Type: 
  Country: None (occurrence: None)
  Receive Date: 20090813
  Receipt Date: 20090813
  Transmission Date: 20100115
  Serious: Yes (Hospitalization)
  Sender: FDA-Public Use
  Company Number: None

PATIENT
  Age: 56 Year
  Sex: Female
  Weight: 50.8029 kg

DRUGS (1)
  1. PRISTIO 50 MG. WYETH PHARM. [Suspect]
     Indication: DEPRESSION
     Dosage: ONE TABLET EVERY AM PO
     Route: 048
     Dates: start: 20090718, end: 20090725

REACTIONS (7)
  - BALANCE DISORDER [None]
  - COORDINATION ABNORMAL [None]
  - DIZZINESS [None]
  - DYSGEUSIA [None]
  - HYPOAESTHESIA [None]
  - PALPITATIONS [None]
  - TREMOR [None]
